FAERS Safety Report 8154534-7 (Version None)
Quarter: 2012Q1

REPORT INFORMATION
  Report Type: 
  Country: None (occurrence: None)
  Receive Date: 20120215
  Receipt Date: 20120209
  Transmission Date: 20120608
  Serious: Yes (Life-Threatening, Hospitalization, Other)
  Sender: FDA-Public Use
  Company Number: 2012SP002785

PATIENT
  Sex: Male

DRUGS (1)
  1. SAPHRIS [Suspect]
     Indication: PRODUCT USED FOR UNKNOWN INDICATION
     Dosage: 10 MG, BID, SL
     Route: 060
     Dates: start: 20111223, end: 20111225

REACTIONS (3)
  - PHARYNGEAL OEDEMA [None]
  - SWOLLEN TONGUE [None]
  - DYSARTHRIA [None]
